FAERS Safety Report 19722299 (Version 5)
Quarter: 2021Q4

REPORT INFORMATION
  Report Type: Report from Study
  Country: BR (occurrence: BR)
  Receive Date: 20210819
  Receipt Date: 20211118
  Transmission Date: 20220304
  Serious: Yes (Hospitalization, Other)
  Sender: FDA-Public Use
  Company Number: NVSC2021BR182225

PATIENT
  Age: 57 Year
  Sex: Female
  Weight: 57 kg

DRUGS (7)
  1. PIQRAY [Suspect]
     Active Substance: ALPELISIB
     Indication: Breast cancer metastatic
     Dosage: 150 MG, BID
     Route: 048
     Dates: start: 202106, end: 20210709
  2. PIQRAY [Suspect]
     Active Substance: ALPELISIB
     Dosage: 250 MG, QD (1 TABLET OF 200 MG AND 1 TABLET OF 50 MG))
     Route: 065
     Dates: start: 20210615
  3. PIQRAY [Suspect]
     Active Substance: ALPELISIB
     Dosage: 250 MG, QD (200 + 50 MG, STOPPED 10 TO 15 DAYS AGO)
     Route: 065
     Dates: start: 20210806
  4. FULVESTRANT [Suspect]
     Active Substance: FULVESTRANT
     Indication: Product used for unknown indication
     Dosage: UNK UNK, QMO
     Route: 065
  5. PURAMIN [Concomitant]
     Indication: Thyroid disorder
     Dosage: 1 DF, QD (MORE THAN 20 YEARS AGO)
     Route: 048
  6. PANTOPRAZOLE SODIUM [Concomitant]
     Active Substance: PANTOPRAZOLE SODIUM
     Indication: Abdominal discomfort
     Dosage: 1 DF, QD (1 YEAR AGO)
     Route: 048
  7. PREGABALIN [Concomitant]
     Active Substance: PREGABALIN
     Indication: Depression
     Dosage: 2 DF, QD (5 MONTHS AGO)
     Route: 048

REACTIONS (7)
  - Kidney infection [Unknown]
  - Metastases to stomach [Unknown]
  - Metastases to biliary tract [Unknown]
  - Dehydration [Unknown]
  - Hyperglycaemia [Not Recovered/Not Resolved]
  - Blood glucose increased [Unknown]
  - Inappropriate schedule of product administration [Unknown]

NARRATIVE: CASE EVENT DATE: 20210615
